FAERS Safety Report 5851014-6 (Version None)
Quarter: 2008Q3

REPORT INFORMATION
  Report Type: 
  Country: None (occurrence: None)
  Receive Date: 20080820
  Receipt Date: 20080813
  Transmission Date: 20090109
  Serious: Yes (Death)
  Sender: FDA-Public Use
  Company Number: GB-BAYER-200811104BNE

PATIENT
  Sex: Female
  Weight: 40 kg

DRUGS (1)
  1. FLUDARABINE [Suspect]
     Indication: CHRONIC LYMPHOCYTIC LEUKAEMIA
     Route: 042
     Dates: start: 19990401, end: 19990501

REACTIONS (2)
  - METASTATIC SQUAMOUS CELL CARCINOMA [None]
  - MUSCULOSKELETAL PAIN [None]
